FAERS Safety Report 8210027-X (Version None)
Quarter: 2012Q1

REPORT INFORMATION
  Report Type: 
  Country: None (occurrence: None)
  Receive Date: 20120314
  Receipt Date: 20111214
  Transmission Date: 20120608
  Serious: No
  Sender: FDA-Public Use
  Company Number: US-ASTRAZENECA-2007UW03669

PATIENT
  Age: 78 Year
  Sex: Female
  Weight: 54.4 kg

DRUGS (6)
  1. CRESTOR [Suspect]
     Dosage: HIGHER DOSES
     Route: 048
  2. CRESTOR [Suspect]
     Indication: BLOOD CHOLESTEROL INCREASED
     Route: 048
     Dates: start: 20060101
  3. CRESTOR [Suspect]
     Dosage: TAKING 5 MG TABLET EVERY THREE DAY
     Route: 048
  4. TOMICILLIN [Concomitant]
  5. TOPROL-XL [Suspect]
     Indication: ISCHAEMIC HEART DISEASE PROPHYLAXIS
     Route: 048
  6. ASPIRIN [Concomitant]

REACTIONS (18)
  - ADVERSE EVENT [None]
  - DEPRESSED MOOD [None]
  - RASH [None]
  - PAIN [None]
  - INFLUENZA LIKE ILLNESS [None]
  - BLOOD PRESSURE INCREASED [None]
  - TACHYCARDIA PAROXYSMAL [None]
  - POLYARTHRITIS [None]
  - GAIT DISTURBANCE [None]
  - CONSTIPATION [None]
  - ASTHENIA [None]
  - COUGH [None]
  - INSOMNIA [None]
  - PAIN IN EXTREMITY [None]
  - MYALGIA [None]
  - CHEST PAIN [None]
  - ARTHRALGIA [None]
  - OFF LABEL USE [None]
